FAERS Safety Report 14383975 (Version 1)
Quarter: 2018Q1

REPORT INFORMATION
  Report Type: Spontaneous
  Country: US (occurrence: US)
  Receive Date: 20180115
  Receipt Date: 20180115
  Transmission Date: 20180509
  Serious: No
  Sender: FDA-Public Use
  Company Number: US-ASTRAZENECA-2018SE03002

PATIENT
  Age: 917 Month
  Sex: Female
  Weight: 72.6 kg

DRUGS (8)
  1. LOSARTAN. [Concomitant]
     Active Substance: LOSARTAN
     Indication: BLOOD PRESSURE ABNORMAL
     Route: 048
  2. BRILINTA [Suspect]
     Active Substance: TICAGRELOR
     Indication: HEART RATE IRREGULAR
     Route: 048
     Dates: start: 2016
  3. METOPROLOL TARTRATE. [Suspect]
     Active Substance: METOPROLOL TARTRATE
     Indication: CARDIAC DISORDER
     Route: 048
     Dates: start: 2004
  4. CLONIDINE. [Concomitant]
     Active Substance: CLONIDINE
     Indication: DIURETIC THERAPY
     Route: 048
  5. BRILINTA [Suspect]
     Active Substance: TICAGRELOR
     Indication: ANTICOAGULANT THERAPY
     Route: 048
  6. INSULIN [Concomitant]
     Active Substance: INSULIN NOS
     Indication: DIABETES MELLITUS
  7. BRILINTA [Suspect]
     Active Substance: TICAGRELOR
     Indication: HEART RATE IRREGULAR
     Route: 048
  8. BRILINTA [Suspect]
     Active Substance: TICAGRELOR
     Indication: ANTICOAGULANT THERAPY
     Route: 048
     Dates: start: 2016

REACTIONS (5)
  - Off label use [Unknown]
  - Intentional product use issue [Unknown]
  - Overweight [Unknown]
  - Alopecia [Not Recovered/Not Resolved]
  - Product use issue [Unknown]

NARRATIVE: CASE EVENT DATE: 201702
